FAERS Safety Report 10216755 (Version 1)
Quarter: 2014Q2

REPORT INFORMATION
  Report Type: Spontaneous
  Country: US (occurrence: US)
  Receive Date: 20140604
  Receipt Date: 20140604
  Transmission Date: 20141212
  Serious: Yes (Death)
  Sender: FDA-Public Use
  Company Number: US-PFIZER INC-2014150078

PATIENT
  Age: 63 Year
  Sex: Male

DRUGS (6)
  1. INLYTA [Suspect]
     Dosage: 5 MG, 2X/DAY
     Route: 048
  2. FLUTICASONE SPR [Concomitant]
     Dosage: UNK UG, UNK
  3. IMODIUM A-D [Concomitant]
     Dosage: 2 MG, UNK
  4. ZOCOR [Concomitant]
     Dosage: 10 MG, UNK
  5. ZANTAC [Concomitant]
     Dosage: 75, UNK
  6. VITAMIN D [Concomitant]
     Dosage: 1000 IU, UNK

REACTIONS (1)
  - Death [Fatal]
